FAERS Safety Report 8227231-7 (Version None)
Quarter: 2012Q1

REPORT INFORMATION
  Report Type: 
  Country: None (occurrence: None)
  Receive Date: 20120322
  Receipt Date: 20120312
  Transmission Date: 20120608
  Serious: Yes (Other)
  Sender: FDA-Public Use
  Company Number: AR-AMGEN-ARGSP2011042074

PATIENT
  Age: 74 Year
  Sex: Female
  Weight: 70 kg

DRUGS (4)
  1. ENBREL [Suspect]
     Indication: RHEUMATOID ARTHRITIS
     Dosage: 50 MG, WEEKLY
     Route: 058
     Dates: start: 20080804, end: 20090101
  2. VITAMINS                           /90003601/ [Concomitant]
     Dosage: UNK
     Route: 048
  3. ENBREL [Suspect]
     Dosage: 50 MG, WEEKLY
     Route: 058
     Dates: start: 20070101, end: 20090101
  4. CALCIUM CARBONATE [Concomitant]
     Dosage: UNK
     Route: 048

REACTIONS (5)
  - FALL [None]
  - FRACTURE [None]
  - URINARY TRACT INFECTION [None]
  - HIP ARTHROPLASTY [None]
  - KNEE ARTHROPLASTY [None]
